FAERS Safety Report 22116353 (Version 2)
Quarter: 2023Q2

REPORT INFORMATION
  Report Type: Spontaneous
  Country: CH (occurrence: CH)
  Receive Date: 20230320
  Receipt Date: 20230410
  Transmission Date: 20230722
  Serious: Yes (Other)
  Sender: FDA-Public Use
  Company Number: CH-PFIZER INC-202300114368

PATIENT
  Sex: Male

DRUGS (2)
  1. ACCUPRO [Suspect]
     Active Substance: QUINAPRIL HYDROCHLORIDE
     Indication: Cardiomyopathy
     Dosage: 5 MG, 2X/DAY (10 MG (5-0-5) EVERY DAY)
     Dates: start: 2000, end: 20221130
  2. ACCUPRO [Suspect]
     Active Substance: QUINAPRIL HYDROCHLORIDE
     Indication: Cardiac failure

REACTIONS (2)
  - Cardiac disorder [Recovered/Resolved]
  - Coronavirus infection [Unknown]
